FAERS Safety Report 5040236-2 (Version None)
Quarter: 2006Q2

REPORT INFORMATION
  Report Type: 
  Country: None (occurrence: None)
  Receive Date: 20060630
  Receipt Date: 20060622
  Transmission Date: 20061013
  Serious: Yes (Hospitalization)
  Sender: FDA-Public Use
  Company Number: JP-JNJFOC-20060303730

PATIENT
  Sex: Female
  Weight: 43 kg

DRUGS (18)
  1. REMICADE [Suspect]
     Indication: RHEUMATOID ARTHRITIS
     Route: 042
  2. PREDONINE [Suspect]
     Indication: ANTIINFLAMMATORY THERAPY
     Route: 048
  3. PARAMEZONE [Suspect]
     Indication: ANTIINFLAMMATORY THERAPY
     Dosage: DOSE 4 MG AND 2 MG
     Route: 048
  4. EUGLUCON [Suspect]
     Indication: DRUG USE FOR UNKNOWN INDICATION
     Route: 048
  5. MYMITIN [Suspect]
     Indication: DRUG USE FOR UNKNOWN INDICATION
     Route: 048
  6. INTEBAN SP [Suspect]
     Indication: DRUG USE FOR UNKNOWN INDICATION
     Route: 048
  7. BUCILLAMINE [Suspect]
     Indication: DRUG USE FOR UNKNOWN INDICATION
     Dosage: 200 MG, 100 MG
     Route: 048
  8. PANSPORIN [Suspect]
  9. PANSPORIN [Suspect]
     Indication: CELLULITIS
  10. CLARITHROMYCIN [Suspect]
     Indication: CELLULITIS
     Route: 048
  11. VANMYCIN [Suspect]
     Indication: CELLULITIS
     Route: 030
  12. RHEUMATREX [Suspect]
     Indication: RHEUMATOID ARTHRITIS
     Route: 048
  13. RIMATIL [Concomitant]
     Route: 048
  14. NISUTADIL [Concomitant]
     Dosage: DOSE 40MG AND 20 MG
     Route: 048
  15. DONASHIN [Concomitant]
     Route: 048
  16. TORUSITORIN [Concomitant]
     Dosage: 0.75 RG DAILY
     Route: 048
  17. PREDNISOLONE [Concomitant]
     Route: 048
  18. AZULFIDINE EN-TABS [Concomitant]

REACTIONS (5)
  - BONE MARROW FAILURE [None]
  - CELLULITIS [None]
  - HYPOALBUMINAEMIA [None]
  - PANCYTOPENIA [None]
  - STAPHYLOCOCCAL INFECTION [None]
